FAERS Safety Report 19950760 (Version 2)
Quarter: 2021Q4

REPORT INFORMATION
  Report Type: Spontaneous
  Country: IT (occurrence: IT)
  Receive Date: 20211014
  Receipt Date: 20211025
  Transmission Date: 20220304
  Serious: Yes (Hospitalization, Other)
  Sender: FDA-Public Use
  Company Number: IT-SA-2020SA255085

PATIENT
  Age: 77 Year
  Sex: Male

DRUGS (16)
  1. CLOPIDOGREL [Suspect]
     Active Substance: CLOPIDOGREL BISULFATE
     Indication: Thrombosis
     Dosage: UNK
     Route: 065
     Dates: start: 201904
  2. CLOPIDOGREL [Suspect]
     Active Substance: CLOPIDOGREL BISULFATE
     Indication: Antiplatelet therapy
     Dosage: 75 MILLIGRAM
     Route: 065
     Dates: start: 20190427
  3. RIVAROXABAN [Suspect]
     Active Substance: RIVAROXABAN
     Indication: Atrial fibrillation
     Dosage: UNK
     Route: 065
  4. ASPIRIN [Suspect]
     Active Substance: ASPIRIN
     Indication: Stenosis
     Dosage: UNK
     Route: 065
     Dates: start: 201904, end: 201904
  5. ASPIRIN [Suspect]
     Active Substance: ASPIRIN
     Indication: Antiplatelet therapy
     Dosage: 100 MILLIGRAM
     Route: 065
     Dates: start: 20190427, end: 20190429
  6. TICAGRELOR [Suspect]
     Active Substance: TICAGRELOR
     Indication: Thrombosis
     Dosage: 90 MILLIGRAM, TWO TIMES A DAY (180 MILLIGRAM, ONCE A DAY)
     Route: 065
  7. DABIGATRAN [Suspect]
     Active Substance: DABIGATRAN
     Indication: Atrial fibrillation
     Dosage: UNK
     Route: 065
  8. EDOXABAN TOSYLATE [Suspect]
     Active Substance: EDOXABAN TOSYLATE
     Indication: Atrial fibrillation
     Dosage: UNK
     Route: 065
  9. ELIQUIS [Suspect]
     Active Substance: APIXABAN
     Indication: Thrombosis
     Dosage: 5 MILLIGRAM, TWO TIMES A DAY (10 MILLIGRAM, ONCE A DAY)
     Route: 065
  10. ELIQUIS [Suspect]
     Active Substance: APIXABAN
     Indication: Embolism venous
  11. EDOXABAN TOSYLATE [Concomitant]
     Active Substance: EDOXABAN TOSYLATE
     Indication: Atrial fibrillation
     Dosage: 60 MILLIGRAM
     Route: 065
  12. EDOXABAN TOSYLATE [Concomitant]
     Active Substance: EDOXABAN TOSYLATE
     Indication: Product used for unknown indication
     Dosage: 60 MILLIGRAM
     Route: 065
     Dates: start: 20190427
  13. RABEPRAZOLE [Concomitant]
     Active Substance: RABEPRAZOLE
     Indication: Product used for unknown indication
     Dosage: 20 MILLIGRAM
     Route: 065
     Dates: start: 20190427
  14. RABEPRAZOLE [Concomitant]
     Active Substance: RABEPRAZOLE
     Dosage: UNK
     Route: 065
  15. TIROFIBAN [Concomitant]
     Active Substance: TIROFIBAN
     Indication: Thrombosis
     Dosage: UNK
     Route: 065
  16. TICAGRELOR [Concomitant]
     Active Substance: TICAGRELOR
     Indication: Drug therapy
     Dosage: 0.9 MILLIGRAM, TWO TIMES A DAY
     Route: 065

REACTIONS (9)
  - Angina pectoris [Unknown]
  - Coronary artery stenosis [Unknown]
  - Intermittent claudication [Unknown]
  - Peripheral artery stenosis [Unknown]
  - Vascular stent thrombosis [Unknown]
  - Erythema [Unknown]
  - Off label use [Unknown]
  - Hypersensitivity [Unknown]
  - Drug hypersensitivity [Unknown]

NARRATIVE: CASE EVENT DATE: 20190429
